FAERS Safety Report 10043226 (Version 1)
Quarter: 2014Q1

REPORT INFORMATION
  Report Type: Spontaneous
  Country: GB (occurrence: GB)
  Receive Date: 20140328
  Receipt Date: 20140328
  Transmission Date: 20141002
  Serious: Yes (Hospitalization, Disabling, Other)
  Sender: FDA-Public Use
  Company Number: GB-DRREDDYS-GER/UKI/14/0039211

PATIENT
  Age: 35 Year
  Sex: Male
  Weight: 98 kg

DRUGS (5)
  1. SERTRALINE [Suspect]
     Indication: DEPRESSED MOOD
     Route: 048
     Dates: start: 20131122
  2. SERTRALINE [Interacting]
     Route: 048
     Dates: end: 20140207
  3. AMITRIPTYLINE [Interacting]
     Indication: NEURALGIA
     Route: 048
     Dates: start: 20130924
  4. AMITRIPTYLINE [Interacting]
     Route: 048
     Dates: end: 20140214
  5. DIAZEPAM [Concomitant]
     Indication: PRODUCT USED FOR UNKNOWN INDICATION
     Dates: start: 20140129, end: 20140207

REACTIONS (13)
  - Extrasystoles [Recovered/Resolved]
  - Anxiety [Recovered/Resolved]
  - Panic attack [Recovered/Resolved]
  - Fatigue [Not Recovered/Not Resolved]
  - Palpitations [Recovered/Resolved]
  - Hyperhidrosis [Recovered/Resolved]
  - Hallucination, visual [Recovered/Resolved]
  - Depressed level of consciousness [Recovered/Resolved]
  - Headache [Recovered/Resolved]
  - Chronic fatigue syndrome [Not Recovered/Not Resolved]
  - Depression [Recovered/Resolved]
  - Drug interaction [Unknown]
  - Emotional distress [Unknown]
